FAERS Safety Report 15819948 (Version 1)
Quarter: 2019Q1

REPORT INFORMATION
  Report Type: Spontaneous
  Country: US (occurrence: US)
  Receive Date: 20190114
  Receipt Date: 20190114
  Transmission Date: 20190417
  Serious: Yes (Death, Hospitalization, Other)
  Sender: FDA-Public Use
  Company Number: US-MICRO LABS LIMITED-ML2019-00020

PATIENT
  Age: 36 Year
  Sex: Female

DRUGS (8)
  1. ZOLOFT [Suspect]
     Active Substance: SERTRALINE HYDROCHLORIDE
  2. ATROPINE. [Suspect]
     Active Substance: ATROPINE
  3. FLEXERIL [Suspect]
     Active Substance: CYCLOBENZAPRINE HYDROCHLORIDE
  4. COCAETHYLENE [Suspect]
     Active Substance: COCAETHYLENE
  5. WELLBUTRIN XL [Suspect]
     Active Substance: BUPROPION HYDROCHLORIDE
     Route: 048
  6. DIPHENHYDRAMINE HYDROCHLORIDE. [Suspect]
     Active Substance: DIPHENHYDRAMINE HYDROCHLORIDE
  7. NORSERTRALINE [Suspect]
     Active Substance: DESMETHYLSERTRALINE
  8. BENZOYLECGONINE [Suspect]
     Active Substance: BENZOYLECGONINE

REACTIONS (3)
  - Seizure [Unknown]
  - Toxicity to various agents [Fatal]
  - Agitation [Unknown]
